FAERS Safety Report 6372168-1 (Version None)
Quarter: 2009Q3

REPORT INFORMATION
  Report Type: 
  Country: None (occurrence: None)
  Receive Date: 20090917
  Receipt Date: 20090904
  Transmission Date: 20100115
  Serious: Yes (Death)
  Sender: FDA-Public Use
  Company Number: ADR19192009 (ARROW GENERICS LOG NO.: AG1568)

PATIENT
  Age: 78 Year
  Sex: Male

DRUGS (11)
  1. SIMVASTATIN [Suspect]
  2. SALBUTAMOL (MFR: UNKNOWN) [Suspect]
  3. SPRIVA [Concomitant]
  4. CO-CODAMOL [Concomitant]
  5. FUROSEMIDE [Concomitant]
  6. ASPIRIN [Concomitant]
  7. NICORANDIL [Concomitant]
  8. PARIET [Concomitant]
  9. SERETIDE [Concomitant]
  10. ISOSORBIDE MONONITRATE [Concomitant]
  11. BISOPROLOL [Concomitant]

REACTIONS (2)
  - LEFT VENTRICULAR FAILURE [None]
  - MYOCARDIAL ISCHAEMIA [None]
